FAERS Safety Report 6605090-3 (Version None)
Quarter: 2010Q1

REPORT INFORMATION
  Report Type: 
  Country: None (occurrence: None)
  Receive Date: 20100226
  Receipt Date: 20100217
  Transmission Date: 20100710
  Serious: Yes (Death)
  Sender: FDA-Public Use
  Company Number: GXKR2009GB12318

PATIENT
  Age: 41 Year
  Sex: Male

DRUGS (2)
  1. TRAMADOL (NGX) [Suspect]
     Indication: BACK PAIN
     Dosage: 100 MG, UNK
     Route: 048
     Dates: start: 20090717, end: 20090717
  2. ALCOHOL [Concomitant]

REACTIONS (5)
  - CARDIAC ARREST [None]
  - DRY MOUTH [None]
  - DYSPNOEA [None]
  - OVERDOSE [None]
  - RESPIRATORY DEPRESSION [None]
